FAERS Safety Report 20643697 (Version 1)
Quarter: 2022Q1

REPORT INFORMATION
  Report Type: Spontaneous
  Country: NL (occurrence: NL)
  Receive Date: 20220328
  Receipt Date: 20220328
  Transmission Date: 20220423
  Serious: Yes (Hospitalization)
  Sender: FDA-Public Use
  Company Number: NL-NOVARTISPH-NVSC2022NL068860

PATIENT
  Age: 69 Year
  Sex: Female

DRUGS (2)
  1. FULVESTRANT [Suspect]
     Active Substance: FULVESTRANT
     Indication: Breast cancer
     Dosage: 500 MG
     Route: 065
  2. PALBOCICLIB [Suspect]
     Active Substance: PALBOCICLIB
     Indication: Breast cancer
     Dosage: 125 MG
     Route: 065
     Dates: start: 20170330

REACTIONS (8)
  - Vomiting projectile [Unknown]
  - Constipation [Unknown]
  - Duodenal obstruction [Unknown]
  - Weight decreased [Unknown]
  - Abdominal pain [Unknown]
  - Eructation [Unknown]
  - Gastrointestinal hypermotility [Unknown]
  - Decreased appetite [Unknown]

NARRATIVE: CASE EVENT DATE: 20171121
